FAERS Safety Report 8769666 (Version 10)
Quarter: 2014Q1

REPORT INFORMATION
  Report Type: Spontaneous
  Country: US (occurrence: US)
  Receive Date: 20120905
  Receipt Date: 20140123
  Transmission Date: 20141002
  Serious: Yes (Hospitalization, Disabling, Other)
  Sender: FDA-Public Use
  Company Number: US-009507513-1208USA009426

PATIENT
  Sex: Female
  Weight: 191.8 kg

DRUGS (9)
  1. FOSAMAX [Suspect]
     Indication: OSTEOPOROSIS
     Dosage: 70 MG, QW
     Route: 048
     Dates: start: 1995
  2. ALENDRONATE SODIUM [Suspect]
     Indication: OSTEOPOROSIS
  3. ALENDRONATE SODIUM [Suspect]
     Indication: OSTEOPOROSIS
     Dosage: 70 MG, UNK
     Route: 048
     Dates: end: 2012
  4. CORTICOSTEROIDS (UNSPECIFIED) [Concomitant]
     Dosage: UNK
     Dates: start: 198104
  5. CYCLOSPORINE [Concomitant]
     Indication: TRANSPLANT REJECTION
     Dosage: 100 MG, QAM
     Route: 048
     Dates: start: 199408
  6. CYCLOSPORINE [Concomitant]
     Dosage: 50 MG, UNK
     Route: 048
  7. PREDNISONE [Concomitant]
     Indication: RENAL TRANSPLANT
     Dosage: 5 MG, QD
     Route: 048
     Dates: start: 1981
  8. PREDNISONE [Concomitant]
     Indication: SYSTEMIC LUPUS ERYTHEMATOSUS
  9. IMURAN (AZATHIOPRINE SODIUM) [Concomitant]
     Indication: TRANSPLANT REJECTION
     Dosage: 50 MG, QD, IN THE EVENING
     Dates: start: 199408

REACTIONS (33)
  - Femur fracture [Unknown]
  - Open reduction of fracture [Unknown]
  - Intramedullary rod insertion [Unknown]
  - Cholecystectomy [Unknown]
  - Cerebrovascular accident [Unknown]
  - Humerus fracture [Unknown]
  - Low turnover osteopathy [Unknown]
  - Rotator cuff repair [Unknown]
  - Upper limb fracture [Unknown]
  - Elbow operation [Unknown]
  - Fall [Unknown]
  - Upper limb fracture [Unknown]
  - Fall [Unknown]
  - Wrist fracture [Unknown]
  - Fall [Unknown]
  - Spinal fracture [Unknown]
  - Fall [Unknown]
  - Ulna fracture [Recovered/Resolved]
  - Hand fracture [Recovered/Resolved]
  - Hypertension [Unknown]
  - Rib fracture [Unknown]
  - Fall [Unknown]
  - Thoracic vertebral fracture [Unknown]
  - Sacroiliitis [Unknown]
  - Intervertebral disc degeneration [Unknown]
  - Atrial fibrillation [Unknown]
  - Osteopenia [Unknown]
  - Ovarian failure [Unknown]
  - Plantar fasciitis [Unknown]
  - Skin irritation [Unknown]
  - Hyperlipidaemia [Unknown]
  - Gastrooesophageal reflux disease [Unknown]
  - Constipation [Unknown]
